FAERS Safety Report 26082439 (Version 1)
Quarter: 2025Q4

REPORT INFORMATION
  Report Type: Spontaneous
  Country: JP (occurrence: JP)
  Receive Date: 20251124
  Receipt Date: 20251124
  Transmission Date: 20260119
  Serious: Yes (Death, Hospitalization, Other)
  Sender: ROCHE
  Company Number: JP-CHUGAI-2025024572

PATIENT
  Age: 72 Year
  Sex: Male
  Weight: 61.7 kg

DRUGS (14)
  1. TECENTRIQ [Suspect]
     Active Substance: ATEZOLIZUMAB
     Indication: Lung adenocarcinoma
     Dosage: 1200 MILLIGRAM, ONCE/3WEEKS
     Route: 042
     Dates: start: 20250710, end: 20250730
  2. ACTEMRA [Suspect]
     Active Substance: TOCILIZUMAB
     Indication: Cytokine release syndrome
     Dosage: UNK
     Route: 065
     Dates: start: 20250726
  3. CLOPIDOGREL BISULFATE [Concomitant]
     Active Substance: CLOPIDOGREL BISULFATE
     Dosage: 75 MILLIGRAM, QD,AFTER BREAKFAST
     Route: 050
  4. EZETIMIBE [Concomitant]
     Active Substance: EZETIMIBE
     Dosage: 10 MILLIGRAM, QD,AFTER BREAKFAST
     Route: 050
  5. ELIQUIS [Concomitant]
     Active Substance: APIXABAN
     Dosage: 5 MILLIGRAM, BID,AFTER BREAKFAST AND DINNER
     Route: 050
  6. CASANTHRANOL\DOCUSATE SODIUM [Concomitant]
     Active Substance: CASANTHRANOL\DOCUSATE SODIUM
     Dosage: 1 TAB, BID,AFTER BREAKFAST AND DINNER
     Route: 050
  7. MAGNESIUM OXIDE [Concomitant]
     Active Substance: MAGNESIUM OXIDE
     Dosage: 330 MILLIGRAM, BID,AFTER BREAKFAST AND DINNER
     Route: 050
  8. ENALAPRIL MALEATE [Concomitant]
     Active Substance: ENALAPRIL MALEATE
     Dosage: 5 MILLIGRAM, QD,AFTER BREAKFAST
     Route: 050
  9. ROSUVASTATIN CALCIUM [Concomitant]
     Active Substance: ROSUVASTATIN CALCIUM
     Dosage: 5 MILLIGRAM, QD,AFTER BREAKFAST
     Route: 050
  10. AMLODIPINE [Concomitant]
     Active Substance: AMLODIPINE BESYLATE
     Dosage: 5 MILLIGRAM, QD,AFTER BREAKFAST
     Route: 050
  11. ESOMEPRAZOLE MAGNESIUM [Concomitant]
     Active Substance: ESOMEPRAZOLE MAGNESIUM
     Dosage: 10 MILLIGRAM, QD,AFTER BREAKFAST
     Route: 050
  12. RYBELSUS [Concomitant]
     Active Substance: SEMAGLUTIDE
     Indication: Diabetes mellitus
     Dosage: 7 MILLIGRAM, QD,ON AWAKENING
     Route: 050
  13. BICALUTAMIDE [Concomitant]
     Active Substance: BICALUTAMIDE
     Dosage: 80 MILLIGRAM, QD,AFTER BREAKFAST
     Route: 050
  14. NAFTOPIDIL [Concomitant]
     Active Substance: NAFTOPIDIL
     Dosage: 75 MILLIGRAM, BID,AFTER BREAKFAST AND DINNER
     Route: 050

REACTIONS (10)
  - Cytokine release syndrome [Fatal]
  - Pneumonia aspiration [Fatal]
  - Shock [Fatal]
  - Cholecystitis [Unknown]
  - Multiple organ dysfunction syndrome [Unknown]
  - Pseudomonas infection [Unknown]
  - Systemic candida [Unknown]
  - Staphylococcal infection [Unknown]
  - Serum ferritin increased [Unknown]
  - Dysphagia [Unknown]

NARRATIVE: CASE EVENT DATE: 20250819
